FAERS Safety Report 20904310 (Version 1)
Quarter: 2022Q2

REPORT INFORMATION
  Report Type: Spontaneous
  Country: LT (occurrence: LT)
  Receive Date: 20220602
  Receipt Date: 20220602
  Transmission Date: 20220721
  Serious: Yes (Hospitalization, Other)
  Sender: FDA-Public Use
  Company Number: LT-KOREA IPSEN Pharma-2022-15196

PATIENT
  Age: 48 Year
  Sex: Female

DRUGS (5)
  1. LANREOTIDE ACETATE [Suspect]
     Active Substance: LANREOTIDE ACETATE
     Indication: Carcinoid syndrome
     Route: 065
     Dates: start: 20070821, end: 2008
  2. LANREOTIDE ACETATE [Suspect]
     Active Substance: LANREOTIDE ACETATE
     Indication: Neuroendocrine tumour
     Route: 065
     Dates: start: 20151109
  3. LANREOTIDE ACETATE [Suspect]
     Active Substance: LANREOTIDE ACETATE
     Route: 065
     Dates: start: 20200303
  4. OCTREOTIDE [Suspect]
     Active Substance: OCTREOTIDE
     Indication: Carcinoid syndrome
     Route: 065
     Dates: start: 20190305, end: 2019
  5. OCTREOTIDE [Suspect]
     Active Substance: OCTREOTIDE
     Route: 065
     Dates: start: 20191108

REACTIONS (9)
  - Sepsis [Unknown]
  - Pain [Unknown]
  - Metastases to liver [Unknown]
  - Disease progression [Unknown]
  - Erythema [Not Recovered/Not Resolved]
  - Diarrhoea [Unknown]
  - Flushing [Not Recovered/Not Resolved]
  - Asthenia [Unknown]
  - Therapeutic response shortened [Unknown]

NARRATIVE: CASE EVENT DATE: 20080101
